FAERS Safety Report 25044101 (Version 1)
Quarter: 2025Q1

REPORT INFORMATION
  Report Type: Spontaneous
  Country: CN (occurrence: CN)
  Receive Date: 20250306
  Receipt Date: 20250306
  Transmission Date: 20250409
  Serious: Yes (Death)
  Sender: ABBVIE
  Company Number: CN-PFIZER INC-PV202500014405

PATIENT
  Age: 54 Year
  Sex: Male

DRUGS (6)
  1. AVIBACTAM SODIUM [Suspect]
     Active Substance: AVIBACTAM SODIUM
     Indication: Product used for unknown indication
     Route: 065
     Dates: end: 20250215
  2. AVIBACTAM SODIUM [Suspect]
     Active Substance: AVIBACTAM SODIUM
     Indication: Product used for unknown indication
     Dosage: 2.5 G, 2X/DAY(Q12)
     Route: 042
     Dates: start: 20250206
  3. AVIBACTAM SODIUM [Suspect]
     Active Substance: AVIBACTAM SODIUM
     Indication: Product used for unknown indication
     Route: 042
     Dates: start: 20250205
  4. AVIBACTAM SODIUM [Suspect]
     Active Substance: AVIBACTAM SODIUM
     Indication: Product used for unknown indication
     Dosage: 2.5 G, 2X/DAY(Q12)
     Route: 042
     Dates: start: 20250208
  5. AVIBACTAM SODIUM [Suspect]
     Active Substance: AVIBACTAM SODIUM
     Indication: Product used for unknown indication
     Dosage: 2.5 G, 2X/DAY(Q12)
     Route: 042
     Dates: start: 20250207
  6. AVIBACTAM SODIUM [Suspect]
     Active Substance: AVIBACTAM SODIUM
     Indication: Product used for unknown indication
     Dosage: 2.5 G, 2X/DAY(Q12)
     Route: 042
     Dates: start: 20250211

REACTIONS (2)
  - Death [Fatal]
  - Off label use [Unknown]

NARRATIVE: CASE EVENT DATE: 20250205
